FAERS Safety Report 10540960 (Version 3)
Quarter: 2014Q4

REPORT INFORMATION
  Report Type: Report from Study
  Country: AT (occurrence: AT)
  Receive Date: 20141024
  Receipt Date: 20141104
  Transmission Date: 20150529
  Serious: Yes (Life-Threatening, Hospitalization)
  Sender: FDA-Public Use
  Company Number: AT-ELI_LILLY_AND_COMPANY-AT201409007470

PATIENT
  Age: 71 Year
  Sex: Female
  Weight: 68 kg

DRUGS (2)
  1. OLANZAPINE LONG-ACTING IM [Suspect]
     Active Substance: OLANZAPINE PAMOATE
     Indication: SCHIZOPHRENIA
     Dosage: 405 MG, EVER FOUR WEEKS
     Route: 030
     Dates: start: 20130403
  2. VALPROATE [Concomitant]
     Active Substance: VALPROATE SODIUM
     Indication: SCHIZOAFFECTIVE DISORDER
     Dosage: UNK
     Dates: start: 20130404

REACTIONS (3)
  - Coma [Recovered/Resolved]
  - Heart rate increased [Recovered/Resolved]
  - Hypertension [Recovered/Resolved]

NARRATIVE: CASE EVENT DATE: 20140918
